FAERS Safety Report 4719847-7 (Version None)
Quarter: 2005Q3

REPORT INFORMATION
  Report Type: 
  Country: None (occurrence: None)
  Receive Date: 20050721
  Receipt Date: 20041208
  Transmission Date: 20060218
  Serious: No
  Sender: FDA-Public Use
  Company Number: US-GLAXOSMITHKLINE-A0536643A

PATIENT
  Age: 55 Year
  Sex: Female

DRUGS (4)
  1. AVANDIA [Suspect]
     Dosage: 8MG PER DAY
     Route: 048
     Dates: start: 20040901
  2. AVELOX [Concomitant]
  3. ALTACE [Concomitant]
  4. ZOCOR [Concomitant]

REACTIONS (1)
  - CHEST DISCOMFORT [None]
